FAERS Safety Report 9940399 (Version 1)
Quarter: 2014Q1

REPORT INFORMATION
  Report Type: Spontaneous
  Country: US (occurrence: US)
  Receive Date: 20140303
  Receipt Date: 20140303
  Transmission Date: 20141002
  Serious: Yes (Death)
  Sender: FDA-Public Use
  Company Number: US-BANPHARM-20142162

PATIENT
  Age: 39 Year
  Sex: Male

DRUGS (6)
  1. ETHANOL [Suspect]
  2. ACETAMINOPHEN [Concomitant]
  3. CHLORDIAZEPOXIDE [Concomitant]
  4. ALPRAZOLAM [Concomitant]
  5. METHADONE [Concomitant]
  6. DIPHENHYDRAMINE UNKNOWN PRODUCT [Suspect]

REACTIONS (2)
  - Death [Fatal]
  - Completed suicide [Fatal]
